FAERS Safety Report 10961905 (Version 3)
Quarter: 2015Q3

REPORT INFORMATION
  Report Type: Spontaneous
  Country: US (occurrence: US)
  Receive Date: 20150327
  Receipt Date: 20150720
  Transmission Date: 20151125
  Serious: No
  Sender: FDA-Public Use
  Company Number: US-GILEAD-2015-0143035

PATIENT
  Age: 62 Year
  Sex: Male

DRUGS (1)
  1. HARVONI [Suspect]
     Active Substance: LEDIPASVIR\SOFOSBUVIR
     Indication: HEPATITIS C
     Dosage: 1 DF, QD
     Route: 048
     Dates: start: 20141210, end: 20150304

REACTIONS (4)
  - Hypersensitivity [Unknown]
  - Insomnia [Not Recovered/Not Resolved]
  - Energy increased [Unknown]
  - Influenza [Unknown]

NARRATIVE: CASE EVENT DATE: 201412
